FAERS Safety Report 7913675-7 (Version None)
Quarter: 2011Q4

REPORT INFORMATION
  Report Type: 
  Country: None (occurrence: None)
  Receive Date: 20111110
  Receipt Date: 20111103
  Transmission Date: 20120403
  Serious: Yes (Death, Hospitalization)
  Sender: FDA-Public Use
  Company Number: CLOF-1000261

PATIENT
  Age: 58 Year
  Sex: Male

DRUGS (3)
  1. DAUNORUBICIN HCL [Suspect]
     Indication: ACUTE LEUKAEMIA
     Dates: start: 20080618
  2. EVOLTRA (CLOFARABINE) SOLUTION FOR INFUSION [Suspect]
     Indication: ACUTE LEUKAEMIA
     Dates: start: 20080618
  3. MYLOTARG [Suspect]
     Indication: ACUTE LEUKAEMIA
     Dates: start: 20080618

REACTIONS (4)
  - PANCYTOPENIA [None]
  - FUNGAL INFECTION [None]
  - NEUTROPENIA [None]
  - PULMONARY NECROSIS [None]
